FAERS Safety Report 5627123-3 (Version None)
Quarter: 2008Q1

REPORT INFORMATION
  Report Type: 
  Country: None (occurrence: None)
  Receive Date: 20080212
  Receipt Date: 20080212
  Transmission Date: 20080703
  Serious: No
  Sender: FDA-Public Use
  Company Number: None

PATIENT
  Age: 50 Year
  Sex: Female
  Weight: 61.2356 kg

DRUGS (2)
  1. LEVAQUIN [Suspect]
     Indication: SINUSITIS
     Dates: start: 20060903, end: 20060905
  2. LEVAQUIN [Suspect]
     Indication: SINUSITIS
     Dates: start: 20060903, end: 20060905

REACTIONS (23)
  - ABASIA [None]
  - ANXIETY [None]
  - ARTHRALGIA [None]
  - ASTHENIA [None]
  - ATRIAL FIBRILLATION [None]
  - BURNING SENSATION [None]
  - BURSITIS [None]
  - DRUG LEVEL CHANGED [None]
  - DYSSTASIA [None]
  - FEAR [None]
  - FRUSTRATION [None]
  - GASTROOESOPHAGEAL REFLUX DISEASE [None]
  - HYPERSENSITIVITY [None]
  - ILL-DEFINED DISORDER [None]
  - INSOMNIA [None]
  - MUSCLE TWITCHING [None]
  - MUSCULOSKELETAL PAIN [None]
  - MYALGIA [None]
  - PAIN [None]
  - PAIN IN EXTREMITY [None]
  - SKIN DISCOLOURATION [None]
  - TENDONITIS [None]
  - WHEELCHAIR USER [None]
